FAERS Safety Report 10023539 (Version 2)
Quarter: 2014Q2

REPORT INFORMATION
  Report Type: Spontaneous
  Country: GB (occurrence: GB)
  Receive Date: 20140320
  Receipt Date: 20140605
  Transmission Date: 20141212
  Serious: Yes (Life-Threatening)
  Sender: FDA-Public Use
  Company Number: GB-ACCORD-022553

PATIENT
  Age: 66 Year
  Sex: Female

DRUGS (13)
  1. CHLORPHENAMINE/CHLORPHENAMINE MALEATE/CHLORPHENAMINE RESINATE/CHLORPHENAMINE TANNATE [Concomitant]
  2. ONDANSETRON/ONDANSETRON HYDROCHLORIDE [Concomitant]
  3. AMLODIPINE [Concomitant]
  4. DEXAMETHASONE [Concomitant]
  5. PARACETAMOL [Concomitant]
  6. LANSOPRAZOLE [Concomitant]
  7. CARBOPLATIN [Concomitant]
  8. METOCLOPRAMIDE [Concomitant]
  9. SENNA ALEXANDRINA [Concomitant]
  10. PACLITAXEL/PACLITAXEL LIPOSOME [Suspect]
     Indication: OVARIAN CANCER STAGE III
     Dosage: STARTING SECOND CYCLE
     Route: 042
     Dates: start: 20140221, end: 20140221
  11. ADIZEM-XL [Concomitant]
  12. CANDESARTAN [Concomitant]
  13. METFORMIN [Concomitant]

REACTIONS (5)
  - Nausea [Recovered/Resolved]
  - Flushing [Recovered/Resolved]
  - Feeling hot [Recovered/Resolved]
  - Back pain [Recovered/Resolved]
  - Hypersensitivity [Recovered/Resolved]
